FAERS Safety Report 20875091 (Version 2)
Quarter: 2022Q3

REPORT INFORMATION
  Report Type: Spontaneous
  Country: US (occurrence: US)
  Receive Date: 20220526
  Receipt Date: 20220805
  Transmission Date: 20221027
  Serious: Yes (Hospitalization)
  Sender: FDA-Public Use
  Company Number: US-TEVA-2022-US-2039372

PATIENT
  Age: 2 Month
  Sex: Female

DRUGS (12)
  1. DAUNORUBICIN [Suspect]
     Active Substance: DAUNORUBICIN
     Indication: Acute myeloid leukaemia
     Dosage: 1.7 MG/KG/DOSE DAYS 1, 3, 5; INDUCTION 1
     Route: 065
  2. DAUNORUBICIN [Suspect]
     Active Substance: DAUNORUBICIN
     Indication: Central nervous system leukaemia
  3. ETOPOSIDE [Suspect]
     Active Substance: ETOPOSIDE
     Indication: Acute myeloid leukaemia
     Dosage: 3.3 MG/KG/DOSE DAILY DAYS 1 TO 5; INDUCTION 1
     Route: 065
  4. ETOPOSIDE [Suspect]
     Active Substance: ETOPOSIDE
     Indication: Central nervous system leukaemia
     Dosage: INTENSIFICATION I: ETOPOSIDE 5 MG/KG/DOSE DAILY DAYS 1 TO 5
     Route: 065
  5. MITOXANTRONE [Suspect]
     Active Substance: MITOXANTRONE HYDROCHLORIDE
     Indication: Acute myeloid leukaemia
     Dosage: INDUCTION II: 0.4 MG/KG/DOSE DAILY DAYS 3 TO 6
     Route: 065
  6. MITOXANTRONE [Suspect]
     Active Substance: MITOXANTRONE HYDROCHLORIDE
     Indication: Acute myeloid leukaemia
  7. CYTARABINE [Suspect]
     Active Substance: CYTARABINE
     Indication: Acute myeloid leukaemia
     Dosage: 3.3 MG/KG/DOSE Q12H DAYS 1 TO 10; INDUCTION 1
     Route: 065
  8. CYTARABINE [Suspect]
     Active Substance: CYTARABINE
     Indication: Central nervous system leukaemia
     Dosage: INDUCTION II: HIGH-DOSE CYTARABINE 33 MG/KG/DOSE Q12H DAYS 1 TO 4
     Route: 065
  9. CYTARABINE [Suspect]
     Active Substance: CYTARABINE
     Dosage: INTENSIFICATION I: HIGH-DOSE CYTARABINE 33 MG/KG/DOSE Q12H DAYS 1 TO 5
     Route: 065
  10. CYTARABINE [Suspect]
     Active Substance: CYTARABINE
     Dosage: ON DAY 1; INDUCTION 1 AND INDUCTION 2
     Route: 037
  11. CYTARABINE [Suspect]
     Active Substance: CYTARABINE
     Dosage: INTENSIFICATION I: INTRATHECAL CYTARABINE 20 MG DAY 1
     Route: 037
  12. CYTARABINE [Suspect]
     Active Substance: CYTARABINE
     Dosage: TWICE WEEKLY CYTARABINE FOR 2 WEEKS, WITH CLEARANCE OF BLASTS
     Route: 037

REACTIONS (2)
  - Pseudomonal sepsis [Unknown]
  - Drug ineffective [Unknown]
